FAERS Safety Report 4462177-1 (Version None)
Quarter: 2004Q3

REPORT INFORMATION
  Report Type: 
  Country: None (occurrence: None)
  Receive Date: 20040927
  Receipt Date: 20040913
  Transmission Date: 20050211
  Serious: No
  Sender: FDA-Public Use
  Company Number: CART-10370

PATIENT
  Age: 45 Year
  Sex: Female

DRUGS (1)
  1. CARTICEL [Suspect]
     Indication: ARTHROPATHY
     Dosage: 1 NA ONCE IS
     Route: 035
     Dates: start: 19961216, end: 19961216

REACTIONS (2)
  - FAILURE OF IMPLANT [None]
  - GRAFT COMPLICATION [None]
